FAERS Safety Report 15916676 (Version 1)
Quarter: 2019Q1

REPORT INFORMATION
  Report Type: Spontaneous
  Country: JP (occurrence: JP)
  Receive Date: 20190205
  Receipt Date: 20190205
  Transmission Date: 20190417
  Serious: Yes (Other)
  Sender: FDA-Public Use
  Company Number: JP-SUN PHARMACEUTICAL INDUSTRIES LTD-2019R1-198104

PATIENT
  Sex: Female

DRUGS (7)
  1. TOPIRAMATE. [Suspect]
     Active Substance: TOPIRAMATE
     Indication: EPILEPSY
     Dosage: UNK
     Route: 065
  2. ZONISAMIDE. [Suspect]
     Active Substance: ZONISAMIDE
     Indication: EPILEPSY
     Dosage: UNK
     Route: 065
  3. TEGRETOL [Suspect]
     Active Substance: CARBAMAZEPINE
     Indication: EPILEPSY
     Dosage: UNK
     Route: 048
  4. TOPIRAMATE. [Suspect]
     Active Substance: TOPIRAMATE
     Dosage: 200 MILLIGRAM, DAILY
     Route: 065
  5. LEVETIRACETAM. [Suspect]
     Active Substance: LEVETIRACETAM
     Indication: EPILEPSY
     Dosage: UNK
     Route: 065
  6. TEGRETOL [Suspect]
     Active Substance: CARBAMAZEPINE
     Dosage: 500 MILLIGRAM, DAILY
     Route: 048
  7. ZONISAMIDE. [Suspect]
     Active Substance: ZONISAMIDE
     Dosage: 300 MILLIGRAM, DAILY
     Route: 065

REACTIONS (6)
  - Drug effect incomplete [Unknown]
  - Aggression [Recovering/Resolving]
  - Irritability [Recovered/Resolved]
  - Psychotic behaviour [Recovering/Resolving]
  - Hallucination, auditory [Recovering/Resolving]
  - Persecutory delusion [Recovering/Resolving]
